FAERS Safety Report 6322072-X (Version None)
Quarter: 2009Q3

REPORT INFORMATION
  Report Type: 
  Country: None (occurrence: None)
  Receive Date: 20090821
  Receipt Date: 20090821
  Transmission Date: 20100115
  Serious: Yes (Life-Threatening, Hospitalization)
  Sender: FDA-Public Use
  Company Number: None

PATIENT
  Age: 57 Year
  Weight: 104.3273 kg

DRUGS (1)
  1. ALLOPURINOL [Suspect]

REACTIONS (5)
  - FEELING ABNORMAL [None]
  - INFLUENZA LIKE ILLNESS [None]
  - PNEUMONIA [None]
  - RENAL IMPAIRMENT [None]
  - STEVENS-JOHNSON SYNDROME [None]
